FAERS Safety Report 7478849-0 (Version None)
Quarter: 2011Q2

REPORT INFORMATION
  Report Type: 
  Country: None (occurrence: None)
  Receive Date: 20110513
  Receipt Date: 20110503
  Transmission Date: 20111010
  Serious: Yes (Other)
  Sender: FDA-Public Use
  Company Number: DE-ROCHE-776095

PATIENT
  Sex: Male
  Weight: 60 kg

DRUGS (3)
  1. RIBAVIRIN [Suspect]
     Route: 048
     Dates: start: 20110217, end: 20110302
  2. PEGINTERFERON ALFA-2A [Suspect]
     Route: 058
     Dates: start: 20110421, end: 20110429
  3. PEGINTERFERON ALFA-2A [Suspect]
     Route: 058
     Dates: start: 20110217, end: 20110420

REACTIONS (3)
  - LEUKOPENIA [None]
  - THROMBOCYTOPENIA [None]
  - ANAEMIA [None]
